FAERS Safety Report 9798774 (Version 2)
Quarter: 2014Q1

REPORT INFORMATION
  Report Type: Spontaneous
  Country: US (occurrence: US)
  Receive Date: 20140106
  Receipt Date: 20140106
  Transmission Date: 20141002
  Serious: Yes (Hospitalization)
  Sender: FDA-Public Use
  Company Number: US-GILEAD-2010-0030113

PATIENT
  Age: 54 Year
  Sex: Female
  Weight: 86.64 kg

DRUGS (11)
  1. LETAIRIS [Suspect]
     Indication: PULMONARY ARTERIAL HYPERTENSION
     Route: 048
     Dates: start: 201005
  2. BISOPROLOL [Concomitant]
  3. FUROSEMIDE [Concomitant]
  4. HYDRALAZINE [Concomitant]
  5. JANUVIA [Concomitant]
  6. JANUMET [Concomitant]
  7. NOVOLIN [Concomitant]
  8. SYNTHROID [Concomitant]
  9. ASPIRIN [Concomitant]
  10. DIGOXIN [Concomitant]
  11. AMBIEN [Concomitant]

REACTIONS (2)
  - Swelling face [Recovered/Resolved]
  - Local swelling [Recovered/Resolved]
